FAERS Safety Report 8936585 (Version 1)
Quarter: 2012Q4

REPORT INFORMATION
  Report Type: 
  Country: EE (occurrence: EE)
  Receive Date: 20121130
  Receipt Date: 20121130
  Transmission Date: 20130627
  Serious: Yes (Other)
  Sender: FDA-Public Use
  Company Number: EE-GLAXOSMITHKLINE-B0848819A

PATIENT
  Age: 54 Year
  Sex: Male

DRUGS (4)
  1. ARZERRA [Suspect]
     Indication: LYMPHOCYTIC LYMPHOMA
     Dosage: 2000MG per day
     Route: 042
     Dates: start: 20121113, end: 20121113
  2. SOLU-MEDROL [Concomitant]
     Route: 042
     Dates: start: 20121113, end: 20121113
  3. CETIRIZINE [Concomitant]
     Dates: start: 20121113, end: 20121113
  4. PAMOL [Concomitant]
     Route: 065
     Dates: start: 20121113, end: 20121113

REACTIONS (5)
  - Dyspnoea [Recovered/Resolved]
  - Malaise [Recovered/Resolved]
  - Rales [Recovered/Resolved]
  - Urticaria [Unknown]
  - Cold sweat [Recovered/Resolved]
